FAERS Safety Report 12561735 (Version 1)
Quarter: 2016Q3

REPORT INFORMATION
  Report Type: Spontaneous
  Country: RU (occurrence: RU)
  Receive Date: 20160715
  Receipt Date: 20160715
  Transmission Date: 20161109
  Serious: Yes (Other)
  Sender: FDA-Public Use
  Company Number: RU-SA-2016SA126852

PATIENT
  Age: 77 Year
  Sex: Male

DRUGS (3)
  1. THROMBO ASS [Concomitant]
     Active Substance: ASPIRIN
     Dosage: STRENGTH: 100MG
     Route: 048
  2. BISOPROLOL [Concomitant]
     Active Substance: BISOPROLOL
     Route: 048
  3. PLAVIX [Suspect]
     Active Substance: CLOPIDOGREL BISULFATE
     Indication: THROMBOSIS PROPHYLAXIS
     Route: 048
     Dates: start: 201512, end: 201606

REACTIONS (3)
  - Vascular stent thrombosis [Unknown]
  - Angina pectoris [Unknown]
  - Angina unstable [Unknown]

NARRATIVE: CASE EVENT DATE: 201606
